FAERS Safety Report 17775164 (Version 1)
Quarter: 2020Q2

REPORT INFORMATION
  Report Type: Spontaneous
  Country: US (occurrence: US)
  Receive Date: 20200512
  Receipt Date: 20200512
  Transmission Date: 20200714
  Serious: Yes (Hospitalization)
  Sender: FDA-Public Use
  Company Number: None

PATIENT
  Age: 74 Year
  Sex: Male

DRUGS (21)
  1. SOLIRIS [Suspect]
     Active Substance: ECULIZUMAB
     Indication: MYASTHENIA GRAVIS
     Route: 042
     Dates: start: 20190821
  2. AMLODIPINE [Concomitant]
     Active Substance: AMLODIPINE BESYLATE
  3. FERROUS SULF [Concomitant]
     Active Substance: FERROUS SULFATE
  4. SOLIRIS [Suspect]
     Active Substance: ECULIZUMAB
     Indication: NEUROMYOPATHY
     Route: 042
     Dates: start: 20190821
  5. METFORMIN [Concomitant]
     Active Substance: METFORMIN HYDROCHLORIDE
  6. VITAMIN D3 [Concomitant]
     Active Substance: CHOLECALCIFEROL
  7. BASAGLAR [Concomitant]
     Active Substance: INSULIN GLARGINE
  8. HYDROCHLOROT [Concomitant]
     Active Substance: HYDROCHLOROTHIAZIDE
  9. PREDNISONE. [Concomitant]
     Active Substance: PREDNISONE
  10. PYRIDOSTIGMI [Concomitant]
  11. SIMVASTATIN. [Concomitant]
     Active Substance: SIMVASTATIN
  12. TERBINAFINE. [Concomitant]
     Active Substance: TERBINAFINE
  13. FINASTERIDE. [Concomitant]
     Active Substance: FINASTERIDE
  14. METOPROLOL TARTRATE. [Concomitant]
     Active Substance: METOPROLOL TARTRATE
  15. VITAMIN D [Concomitant]
     Active Substance: VITAMIN D NOS
  16. LOSARTAN POT [Concomitant]
     Active Substance: LOSARTAN POTASSIUM
  17. MYCOPHENOLAT [Concomitant]
     Active Substance: MYCOPHENOLATE MOFETIL
  18. ASPIRIN. [Concomitant]
     Active Substance: ASPIRIN
  19. MESTINON SYP [Concomitant]
  20. ROSUVASTATIN. [Concomitant]
     Active Substance: ROSUVASTATIN
  21. SERTRALINE [Concomitant]
     Active Substance: SERTRALINE HYDROCHLORIDE

REACTIONS (2)
  - Spinal cord compression [None]
  - Therapy interrupted [None]
